FAERS Safety Report 9841230 (Version 1)
Quarter: 2013Q4

REPORT INFORMATION
  Report Type: Spontaneous
  Country: US (occurrence: None)
  Receive Date: 20131219
  Receipt Date: 20131219
  Transmission Date: 20140711
  Serious: Yes (Other)
  Sender: FDA-Public Use
  Company Number: 163-20785-11063199

PATIENT
  Age: 65 Year
  Sex: Female
  Weight: 46.72 kg

DRUGS (23)
  1. THALOMID [Suspect]
     Indication: PLASMA CELL MYELOMA
     Dosage: 100 MG, 1 IN 1 D, PO
     Route: 048
     Dates: start: 20110607, end: 20110627
  2. ACETAMINOPHEN-CODEINE #3 (GALENIC/PARACETAMOL/CODEINE/) (TABLETS)? [Concomitant]
  3. COLACE [Concomitant]
  4. LEVOTHYROXINE SODIUM (LEVOTHYROXINE SODIUM) (TABLETS) [Concomitant]
  5. LOSARTAN POTASSIUM-HCTZ (HYZAAR) (TABLETS) [Concomitant]
  6. MIRALAX (MACROGOL) (POWDER) [Concomitant]
  7. OMEPRAZOLE (OMEPRAZOLE) (CAPSULES) [Concomitant]
  8. PAROXETINE HCL (PAROXETINE HYDROCHLORIDE) (TABLETS) [Concomitant]
  9. PROCHLORPERAZINE MALEATE (PROCHLORPERAZINE MALEATE) (TABLETS) [Concomitant]
  10. VALACYCLOVIR HCL (VALACICLOVIR HYDROCHLORIDE) (TABLETS) [Concomitant]
  11. VITAMIN D (ERGOCALCIFEROL) (TABLETS) [Concomitant]
  12. FENTANYL (FENTANYL) (UNKNOWN) (FENTANYL) [Concomitant]
  13. OXYCODONE (OXYCODONE) (TABLETS) [Concomitant]
  14. IBUPROFEN (IBUPROFEN) (TABLETS) [Concomitant]
  15. LORAZEPAM (LORAZEPAM) (TABLETS) [Concomitant]
  16. PAMIDRONATE (PAMIDRONATE DISODIUM) (INJECTION) [Concomitant]
  17. CALCIUM WITH VITAMIN D (CALCIUM WITH VITAMIN D) (UNKNOWN) [Concomitant]
  18. ASPIRIN (ACETYLSALICYLIC ACID) (CHEWABLE TABLET)? [Concomitant]
  19. POLYETHYLENE GLYCOL (MACROGOL) (POWDER) [Concomitant]
  20. HYDROCHLOROTHIAZIDE (HYDROCHLOROTHIAZIDE) (TABLETS)? [Concomitant]
  21. ZOMETA (ZOLEDRONIC ACID) [Concomitant]
  22. VITAMIN B12 (CYANOCOBALAMIN) (UNKNOWN) [Concomitant]
  23. GRANISETRON HCL(GRANISETRON HYDROCHLORIDE) (UNKNOWN)? [Concomitant]

REACTIONS (2)
  - Rash pruritic [None]
  - Rash macular [None]
